FAERS Safety Report 22631125 (Version 2)
Quarter: 2023Q2

REPORT INFORMATION
  Report Type: Spontaneous
  Country: US (occurrence: US)
  Receive Date: 20230622
  Receipt Date: 20230626
  Transmission Date: 20230721
  Serious: No
  Sender: FDA-Public Use
  Company Number: US-BoehringerIngelheim-2023-BI-245545

PATIENT
  Age: 72 Year
  Sex: Female

DRUGS (4)
  1. STRIVERDI RESPIMAT [Suspect]
     Active Substance: OLODATEROL HYDROCHLORIDE
     Indication: Chronic obstructive pulmonary disease
     Dosage: 2 PUFFS A DAY; INHALATION SPRAY
     Dates: start: 20230511, end: 20230523
  2. STIOLTO RESPIMAT [Suspect]
     Active Substance: OLODATEROL HYDROCHLORIDE\TIOTROPIUM BROMIDE MONOHYDRATE
     Indication: Chronic obstructive pulmonary disease
     Dosage: 2 SPRAYS PER DAY; INHALATION SPRAY
     Dates: start: 20230523
  3. CELEBREX [Concomitant]
     Active Substance: CELECOXIB
     Indication: Arthritis
     Dosage: AS NEEDED
  4. CELEBREX [Concomitant]
     Active Substance: CELECOXIB
     Dosage: AS NEEDED

REACTIONS (2)
  - Dyspnoea exertional [Not Recovered/Not Resolved]
  - Product quality issue [Not Recovered/Not Resolved]

NARRATIVE: CASE EVENT DATE: 20230501
